FAERS Safety Report 5746608-2 (Version None)
Quarter: 2008Q2

REPORT INFORMATION
  Report Type: 
  Country: None (occurrence: None)
  Receive Date: 20080522
  Receipt Date: 20080514
  Transmission Date: 20081010
  Serious: Yes (Other)
  Sender: FDA-Public Use
  Company Number: AT-JNJFOC-20080502801

PATIENT
  Sex: Female

DRUGS (1)
  1. IONSYS                          . [Suspect]
     Indication: PROCEDURAL PAIN
     Route: 044

REACTIONS (4)
  - APPLICATION SITE BLEEDING [None]
  - APPLICATION SITE EXFOLIATION [None]
  - APPLICATION SITE PRURITUS [None]
  - INAPPROPRIATE SCHEDULE OF DRUG ADMINISTRATION [None]
